FAERS Safety Report 10089532 (Version 2)
Quarter: 2014Q2

REPORT INFORMATION
  Report Type: Spontaneous
  Country: US (occurrence: US)
  Receive Date: 20140421
  Receipt Date: 20140624
  Transmission Date: 20141212
  Serious: No
  Sender: FDA-Public Use
  Company Number: US-B.I. PHARMACEUTICALS,INC./RIDGEFIELD-2014-BI-16182BP

PATIENT
  Sex: Male

DRUGS (2)
  1. TRADJENTA [Suspect]
     Indication: TYPE 2 DIABETES MELLITUS
     Route: 065
     Dates: start: 20130403, end: 20140407
  2. LISINOPRIL [Concomitant]
     Indication: HYPERTENSION
     Dosage: 10 MG
     Route: 065

REACTIONS (2)
  - Nausea [Recovered/Resolved]
  - Nausea [Unknown]
